FAERS Safety Report 21354071 (Version 1)
Quarter: 2022Q3

REPORT INFORMATION
  Report Type: Report from Study
  Country: IN (occurrence: IN)
  Receive Date: 20220920
  Receipt Date: 20220920
  Transmission Date: 20221027
  Serious: Yes (Death)
  Sender: FDA-Public Use
  Company Number: IN-NOVARTISPH-NVSC2022IN211573

PATIENT
  Age: 48 Year
  Sex: Male

DRUGS (1)
  1. TASIGNA [Suspect]
     Active Substance: NILOTINIB
     Indication: Chronic myeloid leukaemia
     Dosage: 400 MG, BID
     Route: 065
     Dates: start: 202107

REACTIONS (4)
  - Myocardial infarction [Fatal]
  - Chest pain [Fatal]
  - Haemoglobin decreased [Unknown]
  - Pneumonitis [Unknown]

NARRATIVE: CASE EVENT DATE: 20220801
